FAERS Safety Report 5491893-8 (Version None)
Quarter: 2007Q4

REPORT INFORMATION
  Report Type: 
  Country: None (occurrence: None)
  Receive Date: 20071022
  Receipt Date: 20071010
  Transmission Date: 20080405
  Serious: Yes (Hospitalization)
  Sender: FDA-Public Use
  Company Number: FR-JNJFOC-20071004693

PATIENT
  Sex: Female

DRUGS (8)
  1. IXPRIM [Suspect]
     Indication: PAIN
     Route: 048
  2. CORTANCYL [Suspect]
     Indication: SYSTEMIC LUPUS ERYTHEMATOSUS
     Route: 048
  3. PLAQUENIL [Suspect]
     Indication: SYSTEMIC LUPUS ERYTHEMATOSUS
     Route: 048
  4. NOVATREX [Suspect]
     Route: 048
  5. NOVATREX [Suspect]
     Indication: SYSTEMIC LUPUS ERYTHEMATOSUS
     Route: 048
  6. ACECLOFENAC [Suspect]
     Indication: SYSTEMIC LUPUS ERYTHEMATOSUS
     Route: 048
  7. INEXIUM [Suspect]
     Indication: DYSPEPSIA
     Route: 048
  8. PARACETAMOL [Concomitant]
     Route: 065

REACTIONS (2)
  - PANCYTOPENIA [None]
  - PYREXIA [None]
